FAERS Safety Report 8889411 (Version 1)
Quarter: 2012Q4

REPORT INFORMATION
  Report Type: Spontaneous
  Country: US (occurrence: None)
  Receive Date: 20121102
  Receipt Date: 20121102
  Transmission Date: 20130627
  Serious: Yes (Disabling)
  Sender: FDA-Public Use
  Company Number: None

PATIENT
  Age: 61 Year
  Sex: Male
  Weight: 99.79 kg

DRUGS (2)
  1. PEGASYS 180MCG/0.5ML GENENTECH [Suspect]
     Indication: HEPATITIS C
     Route: 058
     Dates: start: 20111126, end: 20120824
  2. RIBAVIRIN [Concomitant]

REACTIONS (5)
  - Deafness neurosensory [None]
  - Otitis externa [None]
  - Tympanic membrane perforation [None]
  - Otitis media [None]
  - Tinnitus [None]
